FAERS Safety Report 25261767 (Version 1)
Quarter: 2025Q2

REPORT INFORMATION
  Report Type: Spontaneous
  Country: CN (occurrence: CN)
  Receive Date: 20250502
  Receipt Date: 20250502
  Transmission Date: 20250717
  Serious: Yes (Other)
  Sender: JIANGSU HENGRUI
  Company Number: CN-JIANGSU HENGRUI PHARMACEUTICALS CO., LTD.-H2025212679

PATIENT
  Age: 83 Year
  Weight: 78 kg

DRUGS (2)
  1. PACLITAXEL [Suspect]
     Active Substance: PACLITAXEL
     Indication: Lung neoplasm malignant
  2. PACLITAXEL [Suspect]
     Active Substance: PACLITAXEL

REACTIONS (2)
  - Myelosuppression [Recovering/Resolving]
  - Abdominal discomfort [Recovering/Resolving]
